FAERS Safety Report 9830958 (Version 3)
Quarter: 2014Q1

REPORT INFORMATION
  Report Type: Report from Study
  Country: RW (occurrence: RW)
  Receive Date: 20140120
  Receipt Date: 20140307
  Transmission Date: 20141002
  Serious: Yes (Death, Other)
  Sender: FDA-Public Use
  Company Number: PHHY2014RW005282

PATIENT
  Sex: Male

DRUGS (1)
  1. GLIVEC [Suspect]
     Indication: CHRONIC MYELOID LEUKAEMIA
     Dosage: 400 MG

REACTIONS (3)
  - Multi-organ failure [Fatal]
  - Blast crisis in myelogenous leukaemia [Unknown]
  - Therapeutic response decreased [Unknown]
